FAERS Safety Report 8616325-X (Version None)
Quarter: 2012Q3

REPORT INFORMATION
  Report Type: 
  Country: None (occurrence: None)
  Receive Date: 20120823
  Receipt Date: 20120817
  Transmission Date: 20120928
  Serious: Yes (Death)
  Sender: FDA-Public Use
  Company Number: NL-BAXTER-2012BAX014623

PATIENT
  Sex: Female

DRUGS (3)
  1. KIOVIG [Suspect]
     Dosage: 2 VIALS OF 20 GRAMS
     Dates: start: 20120626, end: 20120626
  2. KIOVIG [Suspect]
     Indication: MYASTHENIA GRAVIS
     Route: 065
     Dates: start: 20091231
  3. KIOVIG [Suspect]
     Dosage: 2 VIALS OF 10 GRAMS
     Route: 065
     Dates: start: 20120626, end: 20120626

REACTIONS (1)
  - MYASTHENIA GRAVIS [None]
